FAERS Safety Report 20309535 (Version 1)
Quarter: 2022Q1

REPORT INFORMATION
  Report Type: Spontaneous
  Country: BR (occurrence: BR)
  Receive Date: 20220107
  Receipt Date: 20220107
  Transmission Date: 20220423
  Serious: Yes (Other)
  Sender: FDA-Public Use
  Company Number: BR-SA-SAC20211220000354

PATIENT
  Age: 64 Year
  Sex: Male
  Weight: 65 kg

DRUGS (4)
  1. THYMOGLOBULIN [Suspect]
     Active Substance: LAPINE T-LYMPHOCYTE IMMUNE GLOBULIN
     Indication: Immunosuppression
     Dosage: 200 MG, QD
     Route: 042
     Dates: start: 20211210, end: 20211210
  2. HYDROCORTISONE [Concomitant]
     Active Substance: HYDROCORTISONE
     Dosage: 300 MG, QD
     Route: 042
     Dates: start: 20211210, end: 20211210
  3. CEFAZOLIN [Concomitant]
     Active Substance: CEFAZOLIN
     Dosage: 1 G, TID
     Route: 042
     Dates: start: 20211210, end: 20211211
  4. DIPYRONE [Concomitant]
     Active Substance: DIPYRONE
     Dosage: 1 G, TID
     Route: 042
     Dates: start: 20211210, end: 20211210

REACTIONS (4)
  - Pancytopenia [Not Recovered/Not Resolved]
  - Septic shock [Not Recovered/Not Resolved]
  - Thrombocytopenia [Not Recovered/Not Resolved]
  - Anaemia [Not Recovered/Not Resolved]

NARRATIVE: CASE EVENT DATE: 20211201
